FAERS Safety Report 7922127-X (Version None)
Quarter: 2011Q4

REPORT INFORMATION
  Report Type: 
  Country: None (occurrence: None)
  Receive Date: 20111117
  Receipt Date: 20110118
  Transmission Date: 20120403
  Serious: No
  Sender: FDA-Public Use
  Company Number: US-AMGEN-USASP2011003083

PATIENT
  Sex: Female

DRUGS (2)
  1. ENBREL [Suspect]
     Indication: ANKYLOSING SPONDYLITIS
     Dosage: 50 MG, QWK
     Dates: start: 20110114
  2. METHOTREXATE [Concomitant]
     Dates: start: 20110101

REACTIONS (3)
  - NAUSEA [None]
  - HAEMATURIA [None]
  - ABDOMINAL PAIN UPPER [None]
